FAERS Safety Report 21279020 (Version 2)
Quarter: 2022Q4

REPORT INFORMATION
  Report Type: Spontaneous
  Country: CA (occurrence: CA)
  Receive Date: 20220901
  Receipt Date: 20221025
  Transmission Date: 20230113
  Serious: Yes (Death, Congenital Anomaly, Other)
  Sender: FDA-Public Use
  Company Number: CA-CELGENE-CAN-20190206943

PATIENT
  Age: 1 Day
  Sex: Male

DRUGS (4)
  1. REVLIMID [Suspect]
     Active Substance: LENALIDOMIDE
     Indication: Product used for unknown indication
     Route: 065
     Dates: start: 20140716, end: 20170412
  2. REVLIMID [Suspect]
     Active Substance: LENALIDOMIDE
     Route: 050
     Dates: start: 20170511
  3. BUSULFAN [Suspect]
     Active Substance: BUSULFAN
     Indication: Product used for unknown indication
     Route: 065
  4. MELPHALAN [Suspect]
     Active Substance: MELPHALAN
     Indication: Product used for unknown indication
     Route: 065

REACTIONS (3)
  - Pulmonary aplasia [Fatal]
  - Premature baby [Unknown]
  - Paternal exposure timing unspecified [Unknown]

NARRATIVE: CASE EVENT DATE: 20170810
